FAERS Safety Report 21445027 (Version 1)
Quarter: 2022Q4

REPORT INFORMATION
  Report Type: Report from Study
  Country: US (occurrence: US)
  Receive Date: 20221012
  Receipt Date: 20221012
  Transmission Date: 20230112
  Serious: No
  Sender: FDA-Public Use
  Company Number: US-ABBVIE-4148805

PATIENT
  Sex: Female

DRUGS (1)
  1. SKYRIZI [Suspect]
     Active Substance: RISANKIZUMAB-RZAA
     Indication: Product used for unknown indication
     Route: 058

REACTIONS (4)
  - Dizziness [Unknown]
  - Pruritus [Unknown]
  - Diarrhoea [Unknown]
  - Vertigo [Unknown]

NARRATIVE: CASE EVENT DATE: 20220914
